FAERS Safety Report 11185864 (Version 4)
Quarter: 2015Q3

REPORT INFORMATION
  Report Type: Spontaneous
  Country: US (occurrence: US)
  Receive Date: 20150612
  Receipt Date: 20150722
  Transmission Date: 20151125
  Serious: Yes (Hospitalization, Other)
  Sender: FDA-Public Use
  Company Number: US-GLAXOSMITHKLINE-US2015GSK082451

PATIENT
  Age: 24 Year
  Sex: Female

DRUGS (2)
  1. LAMICTAL XR [Suspect]
     Active Substance: LAMOTRIGINE
     Indication: EPILEPSY
     Dosage: UNK, U
     Route: 065
  2. LAMICTAL XR [Suspect]
     Active Substance: LAMOTRIGINE
     Indication: SEIZURE

REACTIONS (6)
  - Seizure [Unknown]
  - Hospitalisation [Unknown]
  - Drug level increased [Unknown]
  - Intentional product use issue [Unknown]
  - Headache [Unknown]
  - Adverse event [Unknown]

NARRATIVE: CASE EVENT DATE: 201502
